FAERS Safety Report 15319074 (Version 1)
Quarter: 2018Q3

REPORT INFORMATION
  Report Type: Spontaneous
  Country: US (occurrence: US)
  Receive Date: 20180826
  Receipt Date: 20180826
  Transmission Date: 20181010
  Serious: Yes (Death, Hospitalization, Other)
  Sender: FDA-Public Use
  Company Number: US-PRINSTON PHARMACEUTICAL INC.-2018PRN00872

PATIENT
  Age: 99 Year
  Sex: Female
  Weight: 48.73 kg

DRUGS (2)
  1. VALSARTAN. [Suspect]
     Active Substance: VALSARTAN
     Indication: HYPERTENSION
     Dosage: 40 MG ONCE DAILY UP TO 3 TO 4 TIMES A WEEK
     Route: 048
     Dates: start: 2016, end: 20180629
  2. VALSARTAN. [Suspect]
     Active Substance: VALSARTAN
     Dosage: 80 MG, 1X/DAY
     Route: 048
     Dates: start: 20180629

REACTIONS (16)
  - Respiratory failure [Unknown]
  - Gait inability [Unknown]
  - Swelling [Unknown]
  - Bursitis [Unknown]
  - Pulmonary fibrosis [Unknown]
  - White blood cell count abnormal [Unknown]
  - Blood disorder [Unknown]
  - Death [Fatal]
  - Pneumonia [Unknown]
  - Mouth injury [Unknown]
  - Blood pressure decreased [Unknown]
  - Stress fracture [Unknown]
  - Cellulitis [Unknown]
  - Unresponsive to stimuli [Unknown]
  - Arthritis [Unknown]
  - Blood pressure increased [Not Recovered/Not Resolved]

NARRATIVE: CASE EVENT DATE: 2018
